FAERS Safety Report 8029405-7 (Version None)
Quarter: 2012Q1

REPORT INFORMATION
  Report Type: 
  Country: None (occurrence: None)
  Receive Date: 20120106
  Receipt Date: 20120102
  Transmission Date: 20120608
  Serious: Yes (Life-Threatening, Hospitalization)
  Sender: FDA-Public Use
  Company Number: FR-ASTRAZENECA-2012SE00257

PATIENT
  Age: 17363 Day
  Sex: Male

DRUGS (8)
  1. DIPRIVAN [Suspect]
     Indication: ANAESTHESIA
     Route: 042
     Dates: start: 20111124, end: 20111124
  2. METRONIDAZOLE [Suspect]
     Indication: INFECTION PROPHYLAXIS
     Route: 042
     Dates: start: 20111124, end: 20111124
  3. ETOMIDATE [Suspect]
     Indication: ANAESTHESIA
     Route: 042
     Dates: start: 20111124, end: 20111124
  4. CEFUROXIME [Suspect]
     Indication: INFECTION PROPHYLAXIS
     Route: 042
     Dates: start: 20111124, end: 20111124
  5. BLOOD DERIVED PRODUCTS [Concomitant]
  6. SUFENTANIL RENAUDIN [Suspect]
     Indication: ANAESTHESIA
     Route: 042
     Dates: start: 20111124, end: 20111124
  7. CELOCURINE [Suspect]
     Indication: ANAESTHESIA
     Route: 042
     Dates: start: 20111124, end: 20111124
  8. OMEPRAZOLE [Suspect]
     Indication: HAEMORRHAGE
     Route: 042
     Dates: start: 20111124, end: 20111124

REACTIONS (1)
  - ANAPHYLACTIC SHOCK [None]
